FAERS Safety Report 13233908 (Version 1)
Quarter: 2017Q1

REPORT INFORMATION
  Report Type: Report from Study
  Country: None (occurrence: US)
  Receive Date: 20170215
  Receipt Date: 20170215
  Transmission Date: 20170428
  Serious: Yes (Other)
  Sender: FDA-Public Use
  Company Number: US-ABBVIE-17K-163-1867494-00

PATIENT
  Age: 53 Year
  Sex: Female

DRUGS (2)
  1. HUMIRA [Suspect]
     Active Substance: ADALIMUMAB
     Indication: RHEUMATOID ARTHRITIS
     Route: 058
     Dates: start: 20161123, end: 201701
  2. HUMIRA [Suspect]
     Active Substance: ADALIMUMAB
     Route: 058
     Dates: start: 2017

REACTIONS (11)
  - Arthralgia [Unknown]
  - Bronchial disorder [Unknown]
  - Chills [Unknown]
  - Joint swelling [Unknown]
  - Hyperhidrosis [Unknown]
  - Hand deformity [Unknown]
  - Pyrexia [Unknown]
  - Joint stiffness [Unknown]
  - Headache [Unknown]
  - Systemic lupus erythematosus [Unknown]
  - Cough [Unknown]

NARRATIVE: CASE EVENT DATE: 201701
